FAERS Safety Report 7604015-1 (Version None)
Quarter: 2011Q3

REPORT INFORMATION
  Report Type: 
  Country: None (occurrence: None)
  Receive Date: 20110712
  Receipt Date: 20110701
  Transmission Date: 20111222
  Serious: Yes (Other)
  Sender: FDA-Public Use
  Company Number: US-ROCHE-787925

PATIENT
  Sex: Female

DRUGS (1)
  1. AVASTIN [Suspect]
     Dosage: PATIENT HAD 4 DOSES
     Route: 065

REACTIONS (3)
  - DYSARTHRIA [None]
  - ASTHENIA [None]
  - MENTAL STATUS CHANGES [None]
